FAERS Safety Report 24141225 (Version 1)
Quarter: 2024Q3

REPORT INFORMATION
  Report Type: Report from Study
  Country: US (occurrence: None)
  Receive Date: 20240726
  Receipt Date: 20240726
  Transmission Date: 20241017
  Serious: Yes (Hospitalization)
  Sender: ASTRAZENECA
  Company Number: 2024A165996

PATIENT
  Age: 802 Month
  Sex: Male
  Weight: 70.3 kg

DRUGS (5)
  1. IMFINZI [Suspect]
     Active Substance: DURVALUMAB
     Indication: Hepatocellular carcinoma
     Dosage: 1500.0MG AS REQUIRED
     Route: 042
     Dates: start: 20231214, end: 202406
  2. IMFINZI [Suspect]
     Active Substance: DURVALUMAB
     Indication: Bladder neoplasm
     Dosage: 1500.0MG AS REQUIRED
     Route: 042
     Dates: start: 20231214, end: 202406
  3. LENVIMA [Concomitant]
     Active Substance: LENVATINIB
  4. TRAMADOL [Concomitant]
     Active Substance: TRAMADOL\TRAMADOL HYDROCHLORIDE
  5. ELIQUIS [Concomitant]
     Active Substance: APIXABAN

REACTIONS (2)
  - Chest pain [Recovered/Resolved]
  - Dyspnoea [Recovered/Resolved]

NARRATIVE: CASE EVENT DATE: 20240601
